FAERS Safety Report 6835770-6 (Version None)
Quarter: 2010Q3

REPORT INFORMATION
  Report Type: 
  Country: None (occurrence: None)
  Receive Date: 20100713
  Receipt Date: 20100707
  Transmission Date: 20110219
  Serious: Yes (Hospitalization)
  Sender: FDA-Public Use
  Company Number: JP-SANOFI-AVENTIS-2010SA033510

PATIENT
  Age: 87 Year
  Sex: Female
  Weight: 31 kg

DRUGS (8)
  1. AMARYL [Suspect]
     Indication: TYPE 2 DIABETES MELLITUS
     Route: 048
     Dates: start: 20090301, end: 20091013
  2. TAKEPRON [Concomitant]
     Route: 048
     Dates: start: 20090101
  3. CONIEL [Concomitant]
     Indication: HYPERTENSION
     Route: 048
     Dates: start: 20090101, end: 20091013
  4. OLMETEC [Concomitant]
     Indication: HYPERTENSION
     Route: 048
     Dates: start: 20090101
  5. FERROMIA [Concomitant]
     Indication: ANAEMIA
     Route: 048
     Dates: start: 20090101, end: 20091013
  6. HICEE [Concomitant]
     Route: 048
     Dates: start: 20090101, end: 20091013
  7. FRANDOL [Concomitant]
     Route: 062
     Dates: start: 20090101
  8. HOKUNALIN [Concomitant]
     Route: 062
     Dates: start: 20090101

REACTIONS (2)
  - HYPOGLYCAEMIC COMA [None]
  - STRESS CARDIOMYOPATHY [None]
